FAERS Safety Report 8120800-4 (Version None)
Quarter: 2012Q1

REPORT INFORMATION
  Report Type: 
  Country: None (occurrence: None)
  Receive Date: 20120207
  Receipt Date: 20120130
  Transmission Date: 20120608
  Serious: Yes (Hospitalization, Disabling, Other)
  Sender: FDA-Public Use
  Company Number: US-BAYER-2011-097610

PATIENT
  Age: 24 Year
  Sex: Female

DRUGS (2)
  1. YAZ [Suspect]
     Dosage: UNK
     Route: 048
     Dates: start: 20100201, end: 20101201
  2. ACETAMINOPHEN W/ CODEINE [Concomitant]
     Route: 048

REACTIONS (10)
  - CHEST PAIN [None]
  - PAIN [None]
  - THROMBOSIS [None]
  - DEFORMITY [None]
  - DYSPNOEA [None]
  - INJURY [None]
  - PULMONARY EMBOLISM [None]
  - HAEMOPTYSIS [None]
  - DISCOMFORT [None]
  - INSOMNIA [None]
